FAERS Safety Report 25934540 (Version 1)
Quarter: 2025Q4

REPORT INFORMATION
  Report Type: Spontaneous
  Country: BR (occurrence: BR)
  Receive Date: 20251017
  Receipt Date: 20251017
  Transmission Date: 20260117
  Serious: Yes (Other)
  Sender: ROCHE
  Company Number: BR-ROCHE-10000404939

PATIENT
  Sex: Female

DRUGS (5)
  1. OCREVUS [Suspect]
     Active Substance: OCRELIZUMAB
     Indication: Multiple sclerosis
     Route: 065
     Dates: start: 2019, end: 202210
  2. INTERFERON BETA [Concomitant]
     Active Substance: INTERFERON BETA
  3. GLATIRAMER [Concomitant]
     Active Substance: GLATIRAMER
  4. TECFIDERA [Concomitant]
     Active Substance: DIMETHYL FUMARATE
  5. NATALIZUMAB [Concomitant]
     Active Substance: NATALIZUMAB

REACTIONS (3)
  - Breast cancer [Unknown]
  - Thyroid cancer recurrent [Unknown]
  - Lymphadenopathy [Unknown]

NARRATIVE: CASE EVENT DATE: 20220101
